FAERS Safety Report 4519447-8 (Version None)
Quarter: 2004Q4

REPORT INFORMATION
  Report Type: 
  Country: None (occurrence: None)
  Receive Date: 20041202
  Receipt Date: 20041119
  Transmission Date: 20050328
  Serious: Yes (Other)
  Sender: FDA-Public Use
  Company Number: 2004096182

PATIENT
  Age: 92 Year
  Sex: Male

DRUGS (7)
  1. SERTRALINE HCL [Suspect]
     Indication: ILL-DEFINED DISORDER
     Dosage: 100 MG (100 MG, 1 IN 1 D); ORAL
     Route: 048
     Dates: start: 20020815
  2. ASPIRIN [Suspect]
     Indication: ILL-DEFINED DISORDER
     Dosage: 75 MG (75 MG, 1 IN 1 D); ORAL
     Route: 048
     Dates: start: 20010508, end: 20040220
  3. DIPYRIDAMOLE [Suspect]
     Indication: ILL-DEFINED DISORDER
     Dosage: 400 MG (200 MG, 2 IN 1 D); ORAL
     Route: 048
     Dates: start: 20010326, end: 20040220
  4. MEBEVERINE [Concomitant]
  5. PARACETAMOL [Concomitant]
  6. SIMPLE LINCTUS (AMARANTH, ANISE WATER, CHLOROFORM SPIRIT, CITRIC ACID [Concomitant]
  7. PROCHLORPERAZINE [Concomitant]

REACTIONS (3)
  - DYSPEPSIA [None]
  - HAEMATEMESIS [None]
  - OESOPHAGITIS [None]
